FAERS Safety Report 10304453 (Version 2)
Quarter: 2014Q4

REPORT INFORMATION
  Report Type: Spontaneous
  Country: AT (occurrence: AT)
  Receive Date: 20140715
  Receipt Date: 20141226
  Transmission Date: 20150528
  Serious: Yes (Life-Threatening, Hospitalization, Other)
  Sender: FDA-Public Use
  Company Number: AT-009507513-1407AUT005005

PATIENT
  Age: 40 Year
  Sex: Female

DRUGS (58)
  1. SEROQUEL XR [Suspect]
     Active Substance: QUETIAPINE FUMARATE
     Dosage: 150 MG, ONCE A DAY
     Route: 048
     Dates: start: 20130423, end: 20130424
  2. SEROQUEL XR [Suspect]
     Active Substance: QUETIAPINE FUMARATE
     Dosage: 100 MG, ONCE A DAY
     Route: 048
     Dates: start: 20130401, end: 20130422
  3. IXEL [Concomitant]
     Active Substance: MILNACIPRAN HYDROCHLORIDE
     Dosage: 100 MG MILLGRAM (S)
     Dates: start: 20130326, end: 20130408
  4. NICOTINE. [Concomitant]
     Active Substance: NICOTINE
     Dosage: 25 MG/ 16 HOURS
     Dates: start: 20130515, end: 20130528
  5. LYRICA [Concomitant]
     Active Substance: PREGABALIN
     Dosage: 200 MG, UNK
     Dates: start: 20130529
  6. SERETIDE [Concomitant]
     Active Substance: FLUTICASONE FUROATE\SALMETEROL XINAFOATE
     Dosage: SINCE MONTHS
     Dates: end: 20130513
  7. AVELOX [Concomitant]
     Active Substance: MOXIFLOXACIN HYDROCHLORIDE
     Dosage: 400 MG, UNK
     Dates: start: 20130509, end: 20130513
  8. LOVENOX [Concomitant]
     Active Substance: ENOXAPARIN SODIUM
     Dosage: 40 MG,ONCE A DAY
     Dates: start: 20130514
  9. ROKIPRIM [Concomitant]
     Dosage: 750 MG, UNK
     Route: 042
     Dates: start: 20130516, end: 20130520
  10. NICOTINE. [Concomitant]
     Active Substance: NICOTINE
     Dosage: 21 MG, UNK
     Dates: start: 20130514
  11. TUSSAMAG (CAMPHOR (+) EUCALYPTUS OIL (+) SPIKE LAVENDER OIL (+) TURPEN [Concomitant]
     Dosage: 1- 3X/D 1MB
     Dates: start: 20130524
  12. SEROQUEL [Suspect]
     Active Substance: QUETIAPINE FUMARATE
     Dosage: 700 MG, ONCE A DAY
     Route: 048
     Dates: start: 20130530
  13. CIPRALEX [Concomitant]
     Active Substance: ESCITALOPRAM OXALATE
     Dosage: 20 MG MILLGRAM(S)
     Route: 048
     Dates: start: 20130329, end: 20130405
  14. CIPRALEX [Concomitant]
     Active Substance: ESCITALOPRAM OXALATE
     Dosage: 10 MG, UNK
     Dates: start: 20130530, end: 20130530
  15. MIRTABENE [Concomitant]
     Active Substance: MIRTAZAPINE
     Dosage: 60 MG, UNK
     Route: 048
     Dates: start: 20130517, end: 20130528
  16. IXEL [Concomitant]
     Active Substance: MILNACIPRAN HYDROCHLORIDE
     Dosage: 50 MG, UNK
     Dates: start: 20130409, end: 20130410
  17. NICOTINE. [Concomitant]
     Active Substance: NICOTINE
     Dosage: 15 MG/ 16 HOURS
     Dates: start: 20130529
  18. NOVALGIN (DIPYRONE) [Concomitant]
     Active Substance: DIPYRONE
     Dosage: 2 DAILY
     Route: 042
     Dates: start: 20130517, end: 20130517
  19. LYRICA [Concomitant]
     Active Substance: PREGABALIN
     Dosage: 50 MG MILLGRAM(S)
     Dates: start: 20130523, end: 20130524
  20. REBETOL [Suspect]
     Active Substance: RIBAVIRIN
     Dosage: 800 DAILY
     Route: 065
     Dates: start: 20130325, end: 20130514
  21. PEGASYS [Suspect]
     Active Substance: PEGINTERFERON ALFA-2A
     Dosage: 180 MICROGRAM, ONCE A WEEK, SUNDAYS
     Route: 048
     Dates: end: 20130512
  22. MEXALEN [Concomitant]
     Active Substance: LUBIPROSTONE
     Dosage: 1000MG MILLGRAM(S)
     Dates: start: 20130517, end: 20130517
  23. NOVALGIN (DIPYRONE) [Concomitant]
     Active Substance: DIPYRONE
     Dosage: 3 DAILY
     Route: 042
     Dates: start: 20130518, end: 20130518
  24. NOVALGIN (DIPYRONE) [Concomitant]
     Active Substance: DIPYRONE
     Dosage: 80 GTT, UNK
     Route: 042
     Dates: start: 20130528
  25. LYRICA [Concomitant]
     Active Substance: PREGABALIN
     Dosage: 150 MG, UNK
     Dates: start: 20130528, end: 20130528
  26. APREDNISLON [Concomitant]
     Active Substance: PREDNISOLONE
     Dosage: 50 MG, UNK
     Dates: start: 20130524
  27. SEROQUEL [Suspect]
     Active Substance: QUETIAPINE FUMARATE
     Dosage: 500 MG, ONCE A DAY
     Route: 048
     Dates: start: 20130426, end: 20130529
  28. SEROQUEL [Suspect]
     Active Substance: QUETIAPINE FUMARATE
     Dosage: 75 MG, ONCE A DAY
     Route: 048
     Dates: start: 20130329, end: 20130409
  29. MIRTABENE [Concomitant]
     Active Substance: MIRTAZAPINE
     Dosage: 30 MG, UNK
     Route: 048
     Dates: start: 20130321, end: 20130408
  30. RIVOTRIL [Concomitant]
     Active Substance: CLONAZEPAM
     Dosage: 0.5 MG, ONCE A DAY
     Dates: start: 20130508, end: 20130512
  31. SOLUDACORTIN [Concomitant]
     Dosage: 100 MG, UNK
     Route: 042
     Dates: start: 20130518, end: 20130520
  32. SOLUDACORTIN [Concomitant]
     Dosage: 50MG MILLGRMN(S)
     Route: 042
     Dates: start: 20130521, end: 20130523
  33. NOVALGIN (DIPYRONE) [Concomitant]
     Active Substance: DIPYRONE
     Dosage: 1 DAILY
     Route: 042
     Dates: start: 20130528, end: 20130528
  34. NEBILAN [Concomitant]
     Dosage: 5 MG, UNK
     Dates: start: 20130528
  35. KLACID (CLARITHROMYCIN LACTOBIONATE) [Concomitant]
     Active Substance: CLARITHROMYCIN
     Dosage: 1000 MG
     Dates: start: 20130530
  36. COPEGUS [Concomitant]
     Active Substance: RIBAVIRIN
     Dosage: 800 MG, SINCE MONTHS
     Dates: end: 20130325
  37. CIPRALEX [Concomitant]
     Active Substance: ESCITALOPRAM OXALATE
     Dosage: 30 MG MILLGRAM(S)
     Route: 048
     Dates: start: 20130406, end: 20130528
  38. MIRTABENE [Concomitant]
     Active Substance: MIRTAZAPINE
     Dosage: 90 MG, UNK
     Route: 048
     Dates: start: 20130420, end: 20130516
  39. MIRTABENE [Concomitant]
     Active Substance: MIRTAZAPINE
     Dosage: 30 MG, UNK
     Route: 048
     Dates: start: 20130529
  40. IXEL [Concomitant]
     Active Substance: MILNACIPRAN HYDROCHLORIDE
     Dosage: 50 MG MILLGRAM(S)
     Dates: start: 20130325, end: 20130325
  41. SOLUDACORTIN [Concomitant]
     Dosage: 500 MG, UNK
     Route: 042
     Dates: start: 20130515, end: 20130517
  42. SEROQUEL [Suspect]
     Active Substance: QUETIAPINE FUMARATE
     Dosage: 150 MG, ONCE A DAY
     Route: 048
     Dates: start: 20130410, end: 20130424
  43. SEROQUEL [Suspect]
     Active Substance: QUETIAPINE FUMARATE
     Dosage: 300 MG, ONCE A DAY
     Route: 048
     Dates: start: 20130425, end: 20130425
  44. CIPRALEX [Concomitant]
     Active Substance: ESCITALOPRAM OXALATE
     Dosage: 10 DAILY
     Route: 048
     Dates: start: 20130321, end: 20130328
  45. CHLORHEXAMED [Concomitant]
     Dosage: UNK
     Dates: start: 20130415, end: 20130513
  46. MEXALEN [Concomitant]
     Active Substance: LUBIPROSTONE
     Dosage: 1500MG MILLGRAM(S)
     Dates: start: 20130514, end: 20130516
  47. NEXIUM [Concomitant]
     Active Substance: ESOMEPRAZOLE MAGNESIUM
     Dosage: 20 MG, UNK
     Route: 048
     Dates: start: 20130514, end: 20130524
  48. ROKIPRIM [Concomitant]
     Dosage: 500 MG, UNK
     Route: 042
     Dates: start: 20130515, end: 20130515
  49. BERODUAL [Concomitant]
     Active Substance: FENOTEROL HYDROBROMIDE\IPRATROPIUM BROMIDE
     Dosage: 6 GTT DROPS, 4 TIMES A DAY
     Dates: start: 20130515
  50. LYRICA [Concomitant]
     Active Substance: PREGABALIN
     Dosage: 75 MG, UNK
     Dates: start: 20130525, end: 20130526
  51. ZITHROMAX [Concomitant]
     Active Substance: AZITHROMYCIN DIHYDRATE
     Dosage: 1 X 1
     Dates: start: 20130524, end: 20130526
  52. SEROQUEL XR [Suspect]
     Active Substance: QUETIAPINE FUMARATE
     Dosage: 50 MG, ONCE A DAY
     Route: 048
     Dates: start: 20130325, end: 20130331
  53. CIPRALEX [Concomitant]
     Active Substance: ESCITALOPRAM OXALATE
     Dosage: 20 DAILY
     Dates: start: 20130529, end: 20130529
  54. MIRTABENE [Concomitant]
     Active Substance: MIRTAZAPINE
     Dosage: 60 MG MILLGRAM(S)
     Dates: start: 20130409, end: 20130419
  55. NEXIUM [Concomitant]
     Active Substance: ESOMEPRAZOLE MAGNESIUM
     Dosage: 40 MG MILLGRAM(S)
     Route: 048
     Dates: start: 20130525
  56. KALIORAL (CANRENOATE POTASSIUM) [Concomitant]
     Dosage: 1 DF, ONCE A DAY
     Dates: start: 20130514
  57. ROKIPRIM [Concomitant]
     Dosage: 250 MG, UNK
     Route: 042
     Dates: start: 20130521, end: 20130521
  58. LYRICA [Concomitant]
     Active Substance: PREGABALIN
     Dosage: 125 MG MILLGRAM(S)
     Dates: start: 20130527, end: 20130527

REACTIONS (1)
  - Acute respiratory distress syndrome [Recovered/Resolved]

NARRATIVE: CASE EVENT DATE: 20130506
